FAERS Safety Report 21861742 (Version 1)
Quarter: 2023Q1

REPORT INFORMATION
  Report Type: Spontaneous
  Country: US (occurrence: None)
  Receive Date: 20230113
  Receipt Date: 20230113
  Transmission Date: 20230418
  Serious: Yes (Hospitalization, Disabling)
  Sender: FDA-Public Use
  Company Number: None

PATIENT
  Age: 30 Year
  Sex: Female
  Weight: 53.55 kg

DRUGS (6)
  1. MICONAZOLE [Suspect]
     Active Substance: MICONAZOLE
     Indication: Fungal infection
     Dosage: FREQUENCY : DAILY;?
     Route: 067
     Dates: start: 20220914, end: 20220916
  2. VITAMIN D3 [Concomitant]
     Active Substance: CHOLECALCIFEROL
  3. FISH OIL [Concomitant]
     Active Substance: FISH OIL
  4. MAGNESIUM [Concomitant]
     Active Substance: MAGNESIUM
  5. women^s multivitamin [Concomitant]
  6. ZINC [Concomitant]
     Active Substance: ZINC

REACTIONS (6)
  - Chemical burn of genitalia [None]
  - Vulvovaginal exfoliation [None]
  - Genital blister [None]
  - Vulval disorder [None]
  - Vulvovaginal erythema [None]
  - Pain [None]

NARRATIVE: CASE EVENT DATE: 20220916
